FAERS Safety Report 4943085-6 (Version None)
Quarter: 2006Q1

REPORT INFORMATION
  Report Type: 
  Country: None (occurrence: None)
  Receive Date: 20060314
  Receipt Date: 20060124
  Transmission Date: 20060701
  Serious: Yes (Hospitalization, Disabling)
  Sender: FDA-Public Use
  Company Number: JP-MERCK-0601USA03258

PATIENT
  Age: 77 Year
  Sex: Female
  Weight: 42 kg

DRUGS (13)
  1. SINGULAIR [Suspect]
     Indication: ASTHMA
     Route: 048
     Dates: start: 20050826, end: 20050917
  2. SINGULAIR [Suspect]
     Route: 048
     Dates: start: 20050818, end: 20050821
  3. [THERAPY UNSPECIFIED] [Concomitant]
     Route: 051
  4. QVAR 40 [Concomitant]
     Indication: ASTHMA
     Route: 055
     Dates: start: 20030421
  5. SEREVENT [Concomitant]
     Indication: ASTHMA
     Route: 055
     Dates: start: 20050613, end: 20051206
  6. MUCOSOLVAN [Concomitant]
     Indication: SPUTUM RETENTION
     Route: 048
     Dates: start: 20040421, end: 20050913
  7. POLARAMINE [Suspect]
     Indication: RHINORRHOEA
     Route: 048
     Dates: start: 20050826, end: 20050915
  8. MEDICON [Concomitant]
     Indication: COUGH
     Route: 048
     Dates: start: 20050825, end: 20050831
  9. PREDONINE [Concomitant]
     Indication: ASTHMA
     Route: 048
     Dates: start: 20050823, end: 20050826
  10. FORSENID [Concomitant]
     Indication: CONSTIPATION
     Route: 048
     Dates: start: 20050721
  11. THEO-DUR [Concomitant]
     Indication: ASTHMA
     Route: 048
     Dates: start: 19950101
  12. CLARITHROMYCIN [Suspect]
     Indication: BRONCHITIS
     Route: 048
     Dates: start: 20050818, end: 20050821
  13. SPELEAR [Concomitant]
     Indication: SPUTUM RETENTION
     Route: 048
     Dates: start: 20040618, end: 20050913

REACTIONS (1)
  - ALLERGIC GRANULOMATOUS ANGIITIS [None]
